FAERS Safety Report 21914700 (Version 1)
Quarter: 2023Q1

REPORT INFORMATION
  Report Type: Report from Study
  Country: BR (occurrence: BR)
  Receive Date: 20230126
  Receipt Date: 20230126
  Transmission Date: 20230418
  Serious: Yes (Death)
  Sender: FDA-Public Use
  Company Number: BR-CELLTRION INC.-2023BR001570

PATIENT

DRUGS (1)
  1. INFLIXIMAB [Suspect]
     Active Substance: INFLIXIMAB
     Indication: Product used for unknown indication
     Dosage: ROUTE OF ADMINISTRATION: ENDOVENOUS
     Route: 042
     Dates: start: 20230111

REACTIONS (1)
  - Death [Fatal]
